FAERS Safety Report 21227176 (Version 1)
Quarter: 2022Q3

REPORT INFORMATION
  Report Type: Spontaneous
  Country: US (occurrence: None)
  Receive Date: 20220817
  Receipt Date: 20220817
  Transmission Date: 20221026
  Serious: Yes (Other)
  Sender: FDA-Public Use
  Company Number: None

PATIENT
  Age: 63 Year
  Sex: Female
  Weight: 110.25 kg

DRUGS (2)
  1. DALVANCE [Suspect]
     Active Substance: DALBAVANCIN
     Indication: Breast reconstruction
     Dosage: OTHER FREQUENCY : ONE TIME;?
     Route: 042
     Dates: start: 20220726, end: 20220726
  2. DALVANCE [Suspect]
     Active Substance: DALBAVANCIN
     Indication: Infection

REACTIONS (2)
  - Muscle spasms [None]
  - Chest discomfort [None]

NARRATIVE: CASE EVENT DATE: 20220726
